FAERS Safety Report 25807312 (Version 1)
Quarter: 2025Q3

REPORT INFORMATION
  Report Type: Other
  Country: CA (occurrence: CA)
  Receive Date: 20250916
  Receipt Date: 20250916
  Transmission Date: 20251020
  Serious: Yes (Other)
  Sender: APOTEX
  Company Number: CA-PGRTD-E2B_07999245

PATIENT
  Age: 61 Year
  Sex: Female

DRUGS (1)
  1. IMATINIB MESYLATE [Suspect]
     Active Substance: IMATINIB MESYLATE
     Indication: Chronic myeloid leukaemia
     Dosage: 1 EVERY 1 DAYS
     Route: 065

REACTIONS (3)
  - Musculoskeletal toxicity [Unknown]
  - Gastrointestinal toxicity [Unknown]
  - Drug ineffective [Unknown]
